FAERS Safety Report 5737309-5 (Version None)
Quarter: 2008Q2

REPORT INFORMATION
  Report Type: 
  Country: None (occurrence: None)
  Receive Date: 20080512
  Receipt Date: 20080512
  Transmission Date: 20081010
  Serious: Yes (Other)
  Sender: FDA-Public Use
  Company Number: None

PATIENT
  Age: 37 Year
  Sex: Male
  Weight: 97.977 kg

DRUGS (1)
  1. DIGITEK 0.125 ACTAVIS TOTOWA LLC [Suspect]
     Indication: CARDIAC FAILURE CONGESTIVE
     Dosage: ONCE DAILY INTRACARDIA
     Route: 016
     Dates: start: 20080301, end: 20080501

REACTIONS (4)
  - DIZZINESS [None]
  - HEADACHE [None]
  - IMPAIRED DRIVING ABILITY [None]
  - NAUSEA [None]
